FAERS Safety Report 6721779-X (Version None)
Quarter: 2010Q2

REPORT INFORMATION
  Report Type: 
  Country: None (occurrence: None)
  Receive Date: 20100512
  Receipt Date: 20100504
  Transmission Date: 20101027
  Serious: No
  Sender: FDA-Public Use
  Company Number: ZA-ASTRAZENECA-2010SE20916

PATIENT
  Age: 14 Year
  Sex: Female

DRUGS (2)
  1. SEROQUEL [Suspect]
     Indication: INSOMNIA
     Route: 048
  2. LUVOX [Concomitant]
     Indication: DEPRESSION
     Route: 065

REACTIONS (3)
  - LEUKOPENIA [None]
  - OFF LABEL USE [None]
  - PYREXIA [None]
